FAERS Safety Report 21488479 (Version 2)
Quarter: 2022Q4

REPORT INFORMATION
  Report Type: Report from Study
  Country: US (occurrence: US)
  Receive Date: 20221021
  Receipt Date: 20221025
  Transmission Date: 20230112
  Serious: Yes (Hospitalization, Other)
  Sender: FDA-Public Use
  Company Number: US-ABBVIE-4168225

PATIENT
  Sex: Male

DRUGS (1)
  1. HUMIRA [Suspect]
     Active Substance: ADALIMUMAB
     Indication: Product used for unknown indication
     Dosage: FIRST ADMINISTRATION DATE : 2022
     Route: 058

REACTIONS (5)
  - Abscess [Unknown]
  - Condition aggravated [Unknown]
  - Device issue [Recovered/Resolved]
  - Unevaluable event [Unknown]
  - Surgery [Unknown]
